FAERS Safety Report 7620918-6 (Version None)
Quarter: 2011Q3

REPORT INFORMATION
  Report Type: 
  Country: None (occurrence: None)
  Receive Date: 20110719
  Receipt Date: 20110708
  Transmission Date: 20111222
  Serious: Yes (Hospitalization, Other)
  Sender: FDA-Public Use
  Company Number: FR-BAXTER-2011BH000615

PATIENT
  Age: 83 Year
  Sex: Female

DRUGS (8)
  1. CYCLOPHOSPHAMIDE [Suspect]
     Indication: BREAST CANCER
     Route: 042
     Dates: start: 20101214, end: 20101214
  2. TAXOTERE [Suspect]
     Indication: BREAST CANCER
     Route: 042
     Dates: start: 20101214, end: 20101214
  3. MEDROL [Concomitant]
     Indication: PREMEDICATION
     Route: 065
     Dates: start: 20101214, end: 20101214
  4. ONDANSERTRON HYDROCHLORIDE [Concomitant]
     Indication: PREMEDICATION
     Route: 065
     Dates: start: 20101214, end: 20101214
  5. TAXOTERE [Suspect]
     Route: 042
     Dates: start: 20110127, end: 20110127
  6. CYCLOPHOSPHAMIDE [Suspect]
     Route: 042
     Dates: start: 20110127, end: 20110127
  7. TAXOTERE [Suspect]
     Route: 042
     Dates: start: 20110106, end: 20110106
  8. CYCLOPHOSPHAMIDE [Suspect]
     Route: 042
     Dates: start: 20110106, end: 20110106

REACTIONS (3)
  - BLOOD PRESSURE INCREASED [None]
  - OXYGEN SATURATION DECREASED [None]
  - ACUTE PULMONARY OEDEMA [None]
